FAERS Safety Report 19310590 (Version 2)
Quarter: 2021Q3

REPORT INFORMATION
  Report Type: Spontaneous
  Country: US (occurrence: US)
  Receive Date: 20210526
  Receipt Date: 20210917
  Transmission Date: 20211014
  Serious: Yes (Disabling, Other)
  Sender: FDA-Public Use
  Company Number: US-REGENERON PHARMACEUTICALS, INC.-2021-51742

PATIENT

DRUGS (1)
  1. EYLEA [Suspect]
     Active Substance: AFLIBERCEPT
     Indication: MACULAR DEGENERATION
     Dosage: EVERY 6?7 WEEKS IN BOTH EYES
     Route: 031

REACTIONS (10)
  - Eye pain [Unknown]
  - Blindness transient [Recovering/Resolving]
  - Visual brightness [Unknown]
  - Overdose [Unknown]
  - Vision blurred [Unknown]
  - Eyelid margin crusting [Unknown]
  - Corneal abrasion [Unknown]
  - Photopsia [Unknown]
  - Insomnia [Unknown]
  - Injection site discomfort [Unknown]

NARRATIVE: CASE EVENT DATE: 20210518
